FAERS Safety Report 18354426 (Version 1)
Quarter: 2020Q4

REPORT INFORMATION
  Report Type: Spontaneous
  Country: US (occurrence: US)
  Receive Date: 20201006
  Receipt Date: 20201006
  Transmission Date: 20210114
  Serious: No
  Sender: FDA-Public Use
  Company Number: None

PATIENT
  Age: 70 Year
  Sex: Female
  Weight: 58.5 kg

DRUGS (16)
  1. PERIDEX [Concomitant]
     Active Substance: CHLORHEXIDINE GLUCONATE
  2. LEVAQUIN [Concomitant]
     Active Substance: LEVOFLOXACIN
  3. CENTRUM SILVER [Concomitant]
     Active Substance: MINERALS\VITAMINS
  4. CAPECITABINE. [Suspect]
     Active Substance: CAPECITABINE
     Indication: BREAST CANCER
     Route: 048
     Dates: start: 20200907
  5. COZAAR [Concomitant]
     Active Substance: LOSARTAN POTASSIUM
  6. ZOLOFT 100MCG [Concomitant]
  7. GABAPENTIN 100MG [Concomitant]
     Active Substance: GABAPENTIN
  8. LOMOTIL 2.5-0.025MG [Concomitant]
  9. ROSUVASTATIN 10MG [Concomitant]
     Active Substance: ROSUVASTATIN
  10. VITAMIN D 25MCG [Concomitant]
  11. XANAX [Concomitant]
     Active Substance: ALPRAZOLAM
  12. BIOTIN 800MCG [Concomitant]
  13. PEPCID 20MG [Concomitant]
  14. IPRATROPIUM [Concomitant]
     Active Substance: IPRATROPIUM
  15. EXEMESTANE  25MG [Concomitant]
     Active Substance: EXEMESTANE
  16. VITAMIN B12 500MCG [Concomitant]

REACTIONS (2)
  - Paraesthesia [None]
  - Hypoaesthesia [None]

NARRATIVE: CASE EVENT DATE: 20200907
